FAERS Safety Report 21739609 (Version 1)
Quarter: 2022Q4

REPORT INFORMATION
  Report Type: Spontaneous
  Country: US (occurrence: US)
  Receive Date: 20221216
  Receipt Date: 20221216
  Transmission Date: 20230113
  Serious: No
  Sender: FDA-Public Use
  Company Number: US-BRISTOL-MYERS SQUIBB COMPANY-2022-154268

PATIENT
  Age: 68 Year
  Sex: Female

DRUGS (1)
  1. REVLIMID [Suspect]
     Active Substance: LENALIDOMIDE
     Indication: Plasma cell myeloma
     Dosage: LOT/BATCH NO: A3727A?LOT EXPIRATION DATE: -AUG-2024
     Route: 048
     Dates: start: 201906

REACTIONS (2)
  - Dry mouth [Unknown]
  - Lip dry [Unknown]
